FAERS Safety Report 14445582 (Version 1)
Quarter: 2018Q1

REPORT INFORMATION
  Report Type: Spontaneous
  Country: DE (occurrence: DE)
  Receive Date: 20180126
  Receipt Date: 20180126
  Transmission Date: 20180509
  Serious: Yes (Hospitalization, Other)
  Sender: FDA-Public Use
  Company Number: DE-ROCHE-2020972

PATIENT
  Age: 9 Year
  Sex: Female

DRUGS (20)
  1. AMIKACIN [Concomitant]
     Active Substance: AMIKACIN
  2. NOREPINEPHRINE. [Concomitant]
     Active Substance: NOREPINEPHRINE
  3. LAVANID [Concomitant]
  4. FUROSEMIDE. [Concomitant]
     Active Substance: FUROSEMIDE
  5. FILGRASTIM [Concomitant]
     Active Substance: FILGRASTIM
     Route: 065
  6. ACYCLOVIR. [Concomitant]
     Active Substance: ACYCLOVIR
  7. TEICOPLANIN [Concomitant]
     Active Substance: TEICOPLANIN
  8. METAMIZOLE [Concomitant]
     Active Substance: METAMIZOLE
  9. BACTRIM [Concomitant]
     Active Substance: SULFAMETHOXAZOLE\TRIMETHOPRIM
     Route: 065
  10. FLUDARABINE [Concomitant]
     Active Substance: FLUDARABINE PHOSPHATE
     Route: 065
     Dates: start: 20160921, end: 20160924
  11. AMPHOTERICIN B. [Concomitant]
     Active Substance: AMPHOTERICIN B
  12. METAMIZOLE [Concomitant]
     Active Substance: METAMIZOLE
  13. LEVOMEPROMAZINE MALEATE [Concomitant]
     Active Substance: LEVOMEPROMAZINE MALEATE
  14. CEFTRIAXONE. [Concomitant]
     Active Substance: CEFTRIAXONE
     Route: 065
  15. LINEZOLID. [Concomitant]
     Active Substance: LINEZOLID
  16. TISAGENLECLEUCEL. [Suspect]
     Active Substance: TISAGENLECLEUCEL
     Indication: PRODUCT USED FOR UNKNOWN INDICATION
     Dosage: DOSAGE IS UNCERTAIN.
     Route: 041
  17. PARACETAMOL [Concomitant]
     Active Substance: ACETAMINOPHEN
  18. PARACETAMOL [Concomitant]
     Active Substance: ACETAMINOPHEN
  19. ROACTEMRA [Suspect]
     Active Substance: TOCILIZUMAB
     Indication: CYTOKINE RELEASE SYNDROME
     Dosage: DOSAGE IS UNCERTAIN.
     Route: 042
  20. CYCLOPHOSPHAMIDE. [Concomitant]
     Active Substance: CYCLOPHOSPHAMIDE
     Route: 065
     Dates: start: 20160921, end: 20160922

REACTIONS (4)
  - Bronchopulmonary aspergillosis [Not Recovered/Not Resolved]
  - Febrile neutropenia [Recovered/Resolved]
  - Gastroenteritis [Recovered/Resolved]
  - Coagulopathy [Recovered/Resolved]

NARRATIVE: CASE EVENT DATE: 20161012
